FAERS Safety Report 8806009 (Version 1)
Quarter: 2012Q4

REPORT INFORMATION
  Report Type: 
  Country: US (occurrence: US)
  Receive Date: 20120925
  Receipt Date: 20120925
  Transmission Date: 20130627
  Serious: No
  Sender: FDA-Public Use
  Company Number: US-009507513-1209USA007198

PATIENT
  Sex: Female

DRUGS (2)
  1. JANUVIA [Suspect]
     Route: 048
  2. METFORMIN [Interacting]

REACTIONS (4)
  - Chest pain [Unknown]
  - Hyperhidrosis [Unknown]
  - Back pain [Unknown]
  - Drug interaction [Unknown]
